FAERS Safety Report 17609467 (Version 4)
Quarter: 2020Q3

REPORT INFORMATION
  Report Type: Spontaneous
  Country: BR (occurrence: BR)
  Receive Date: 20200401
  Receipt Date: 20200929
  Transmission Date: 20201102
  Serious: Yes (Death, Hospitalization, Other)
  Sender: FDA-Public Use
  Company Number: BR-ASTELLAS-2020US011687

PATIENT
  Age: 61 Year
  Sex: Male

DRUGS (2)
  1. AMPHOTERICIN B, LIPOSOME [Suspect]
     Active Substance: AMPHOTERICIN B
     Indication: VISCERAL LEISHMANIASIS
     Dosage: 150 MG, ONCE DAILY (MID)
     Route: 042
     Dates: start: 20170225, end: 20170314
  2. TACROLIMUS. [Suspect]
     Active Substance: TACROLIMUS
     Indication: LIVER TRANSPLANT
     Route: 048
     Dates: start: 20161119, end: 20170326

REACTIONS (10)
  - Klebsiella infection [Fatal]
  - Respiratory distress [Not Recovered/Not Resolved]
  - Lung consolidation [Not Recovered/Not Resolved]
  - Acute kidney injury [Not Recovered/Not Resolved]
  - Septic shock [Fatal]
  - Cytomegalovirus infection reactivation [Recovered/Resolved]
  - Hypotension [Not Recovered/Not Resolved]
  - Drug ineffective [Fatal]
  - Visceral leishmaniasis [Fatal]
  - General physical health deterioration [Not Recovered/Not Resolved]

NARRATIVE: CASE EVENT DATE: 2017
